FAERS Safety Report 8208743-9 (Version None)
Quarter: 2012Q1

REPORT INFORMATION
  Report Type: 
  Country: None (occurrence: None)
  Receive Date: 20120314
  Receipt Date: 20120308
  Transmission Date: 20120608
  Serious: Yes (Hospitalization, Congenital Anomaly)
  Sender: FDA-Public Use
  Company Number: DE-PFIZER INC-2011194450

PATIENT
  Sex: Male

DRUGS (4)
  1. MIRTAZAPINE [Concomitant]
     Dosage: 7.5 MG, DAILY
     Route: 064
     Dates: start: 20110801, end: 20111001
  2. LEVOTHYROXINE SODIUM [Concomitant]
     Dosage: UNK
     Route: 064
     Dates: start: 19960101
  3. VENLAFAXINE HCL [Suspect]
     Dosage: 300 MG PER DAY
     Route: 064
     Dates: start: 20110801, end: 20111001
  4. ZYPREXA [Concomitant]
     Dosage: 5 MG UP TO 10 MG, DAILY
     Route: 064
     Dates: start: 20110801, end: 20110901

REACTIONS (7)
  - CONGENITAL CHOROID PLEXUS CYST [None]
  - CAESAREAN SECTION [None]
  - ATRIAL SEPTAL DEFECT [None]
  - MATERNAL DRUGS AFFECTING FOETUS [None]
  - MATERNAL EXPOSURE TIMING UNSPECIFIED [None]
  - RESPIRATION ABNORMAL [None]
  - PREMATURE BABY [None]
